FAERS Safety Report 8505191-9 (Version None)
Quarter: 2012Q3

REPORT INFORMATION
  Report Type: 
  Country: None (occurrence: None)
  Receive Date: 20120712
  Receipt Date: 20070226
  Transmission Date: 20120928
  Serious: Yes (Other)
  Sender: FDA-Public Use
  Company Number: CO-PFIZER INC-2012165151

PATIENT
  Age: 70 Year
  Sex: Male

DRUGS (6)
  1. OLMESARTAN MEDOXOMIL AND HYDROCHLOROTHIZIDE [Suspect]
     Dosage: [OLMESARTAN MEDOXOMIL 20 MG]/ [HYDROCHLOROTHIAZIDE 12.5 MG] EVERY 24 HOURS
     Dates: start: 20080623
  2. OLMESARTAN MEDOXOMIL [Suspect]
     Dosage: 20 MG EVERY 24 HOURS
     Dates: start: 20070418, end: 20080623
  3. ASPIRIN [Concomitant]
     Dosage: 100 MG EVERY 24 HOURS
     Dates: start: 20080626
  4. LIPITOR [Suspect]
     Indication: DYSLIPIDAEMIA
     Dosage: 10 MG EVERY 24 HOURS
     Dates: start: 20041118
  5. HYDROCHLOROTHIAZIDE [Suspect]
     Indication: HYPERTENSION
     Dosage: [QUINAPRIL HCL 20 MG]/ [HYDROCHLOROTHIAZIDE 12.5 MG], EVERY 24 HOURS
     Dates: start: 20041118, end: 20070418
  6. AMLODIPINE [Concomitant]
     Dosage: 5 MG EVERY 24 HOURS
     Dates: start: 20060511

REACTIONS (8)
  - ANGIOPATHY [None]
  - BACK PAIN [None]
  - CEREBROVASCULAR ACCIDENT [None]
  - HYPERTENSIVE EMERGENCY [None]
  - CHEST PAIN [None]
  - PAIN IN EXTREMITY [None]
  - ANGINA UNSTABLE [None]
  - COUGH [None]
